FAERS Safety Report 25602427 (Version 1)
Quarter: 2025Q3

REPORT INFORMATION
  Report Type: Spontaneous
  Country: US (occurrence: None)
  Receive Date: 20250724
  Receipt Date: 20250724
  Transmission Date: 20251021
  Serious: No
  Sender: FDA-CTU
  Company Number: None

PATIENT
  Age: 62 Year
  Sex: Male
  Weight: 87.75 kg

DRUGS (13)
  1. REPATHA [Suspect]
     Active Substance: EVOLOCUMAB
     Indication: Hyperlipidaemia
     Route: 030
  2. ASPIRIN [Concomitant]
     Active Substance: ASPIRIN
  3. atorvastatin 20mg oral [Concomitant]
  4. repatha 140 mg injection [Concomitant]
  5. Vitamins D [Concomitant]
  6. ASCORBIC ACID [Concomitant]
     Active Substance: ASCORBIC ACID
  7. Vitamins E [Concomitant]
  8. FISH OIL [Concomitant]
     Active Substance: FISH OIL
  9. HERBALS\TURMERIC [Concomitant]
     Active Substance: HERBALS\TURMERIC
  10. COENZYME Q10 [Concomitant]
     Active Substance: DIETARY SUPPLEMENT\UBIDECARENONE
  11. glucosamine with chondroiten [Concomitant]
  12. MAGNESIUM [Concomitant]
     Active Substance: MAGNESIUM
  13. GARLIQUE [Concomitant]
     Active Substance: GARLIC

REACTIONS (3)
  - Arthralgia [None]
  - Ligament pain [None]
  - Arthritis [None]
